FAERS Safety Report 9306077 (Version 2)
Quarter: 2013Q3

REPORT INFORMATION
  Report Type: Spontaneous
  Country: JP (occurrence: None)
  Receive Date: 20130502
  Receipt Date: 20130703
  Transmission Date: 20140515
  Serious: Yes (Hospitalization)
  Sender: FDA-Public Use
  Company Number: 0238213

PATIENT
  Age: 41 Year
  Sex: Female

DRUGS (6)
  1. TACHOSIL [Suspect]
     Indication: PROPHYLAXIS
     Dosage: (1 SHEET OF REGULAR SIZE)
     Dates: start: 20130306
  2. MAGSENT (MAGNESIUM SULFATE) (INJECTION) [Concomitant]
  3. RITODRINE (RITODRINE) [Concomitant]
  4. VICCILLIN (AMPICILLIN) [Concomitant]
  5. CEFAZOLIN (CEFAZOLIN) [Concomitant]
  6. SURGICEL (OXIDISED CELLULOSE) [Concomitant]

REACTIONS (4)
  - Puerperal pyrexia [None]
  - Anaemia [None]
  - White blood cell count increased [None]
  - Maternal exposure during pregnancy [None]
